FAERS Safety Report 19518090 (Version 1)
Quarter: 2021Q3

REPORT INFORMATION
  Report Type: Spontaneous
  Country: US (occurrence: US)
  Receive Date: 20210712
  Receipt Date: 20210712
  Transmission Date: 20211014
  Serious: Yes (Death)
  Sender: FDA-Public Use
  Company Number: US-HIKMA PHARMACEUTICALS USA INC.-US-H14001-21-03187

PATIENT
  Sex: Female

DRUGS (2)
  1. KETAMINE [Suspect]
     Active Substance: KETAMINE
     Indication: BEHAVIOURAL THERAPY
     Dosage: THREE TIMES DURING TRANSPORT
     Route: 042
  2. KETAMINE [Suspect]
     Active Substance: KETAMINE
     Indication: MENTAL STATUS CHANGES
     Route: 042

REACTIONS (1)
  - Death [Fatal]
